FAERS Safety Report 9540341 (Version 2)
Quarter: 2013Q4

REPORT INFORMATION
  Report Type: Report from Study
  Country: DE (occurrence: DE)
  Receive Date: 20130920
  Receipt Date: 20131022
  Transmission Date: 20140711
  Serious: Yes (Other)
  Sender: FDA-Public Use
  Company Number: DE-ROCHE-1277871

PATIENT
  Age: 61 Year
  Sex: Male

DRUGS (2)
  1. RANIBIZUMAB [Suspect]
     Indication: VISUAL IMPAIRMENT
     Dosage: AS NEEDED
     Route: 050
     Dates: start: 20120814
  2. RANIBIZUMAB [Suspect]
     Indication: DIABETIC RETINAL OEDEMA

REACTIONS (1)
  - Eye haemorrhage [Unknown]
